FAERS Safety Report 10072321 (Version 2)
Quarter: 2014Q2

REPORT INFORMATION
  Report Type: Spontaneous
  Country: DE (occurrence: DE)
  Receive Date: 20140411
  Receipt Date: 20140505
  Transmission Date: 20141212
  Serious: Yes (Hospitalization, Other)
  Sender: FDA-Public Use
  Company Number: DE-BRISTOL-MYERS SQUIBB COMPANY-20587283

PATIENT
  Age: 65 Year
  Sex: Male
  Weight: 105 kg

DRUGS (1)
  1. IPILIMUMAB [Suspect]
     Indication: MALIGNANT MELANOMA
     Dosage: 360MG:NOV10-FEB11,13MAY13,03JUN13,24JUN13,15JUL13.
     Route: 042
     Dates: start: 201011, end: 201307

REACTIONS (3)
  - Lupus-like syndrome [Recovered/Resolved]
  - Hypophysitis [Recovered/Resolved]
  - Malignant neoplasm progression [Unknown]
